FAERS Safety Report 5133353-X (Version None)
Quarter: 2006Q4

REPORT INFORMATION
  Report Type: 
  Country: None (occurrence: None)
  Receive Date: 20060831
  Receipt Date: 20060717
  Transmission Date: 20070319
  Serious: No
  Sender: FDA-Public Use
  Company Number: 2006-BP-08255BP

PATIENT
  Age: 57 Year
  Sex: Female

DRUGS (6)
  1. SPIRIVA [Suspect]
     Indication: CHRONIC OBSTRUCTIVE PULMONARY DISEASE
     Dosage: 18 MCG (18 MCG,1 CAPSULE),IH
     Dates: start: 20050101
  2. SEREVENT (SALMETEREOL XINAFOATE) [Concomitant]
  3. ASPIRIN [Concomitant]
  4. PREDNISONE TAB [Concomitant]
  5. ANTIBIOTIC [Concomitant]
  6. DEPRESSION MED [Concomitant]

REACTIONS (5)
  - ACTIVITIES OF DAILY LIVING IMPAIRED [None]
  - ASTHENIA [None]
  - COUGH [None]
  - FEELING ABNORMAL [None]
  - GAIT DISTURBANCE [None]
